FAERS Safety Report 4330257-7 (Version None)
Quarter: 2004Q2

REPORT INFORMATION
  Report Type: 
  Country: None (occurrence: None)
  Receive Date: 20040401
  Receipt Date: 20040401
  Transmission Date: 20050107
  Serious: Yes (Other)
  Sender: FDA-Public Use
  Company Number: None

PATIENT
  Age: 32 Year
  Sex: Female
  Weight: 81.6475 kg

DRUGS (2)
  1. WELLBUTRIN [Suspect]
     Indication: DEPRESSION
     Dosage: 150 MG BID PO
     Route: 048
  2. WELLBUTRIN [Suspect]
     Indication: FATIGUE
     Dosage: 150 MG BID PO
     Route: 048

REACTIONS (3)
  - AGGRESSION [None]
  - IMPAIRED WORK ABILITY [None]
  - PARAESTHESIA [None]
